FAERS Safety Report 12391873 (Version 3)
Quarter: 2016Q4

REPORT INFORMATION
  Report Type: Spontaneous
  Country: FR (occurrence: FR)
  Receive Date: 20160523
  Receipt Date: 20161019
  Transmission Date: 20170207
  Serious: Yes (Hospitalization)
  Sender: FDA-Public Use
  Company Number: FR-ROCHE-1759725

PATIENT
  Age: 49 Year
  Sex: Female

DRUGS (2)
  1. DISSOLVUROL [Suspect]
     Active Substance: SILICON DIOXIDE
     Indication: OVERWEIGHT
     Dosage: UNK
     Route: 048
     Dates: start: 20160227, end: 20160303
  2. XOLAIR [Suspect]
     Active Substance: OMALIZUMAB
     Indication: ASTHMA
     Dosage: 300 MG, UNK (EVERY 15 DAYS)
     Route: 058
     Dates: start: 20090101, end: 20160303

REACTIONS (2)
  - Malaise [Unknown]
  - Autoimmune haemolytic anaemia [Not Recovered/Not Resolved]

NARRATIVE: CASE EVENT DATE: 201603
